FAERS Safety Report 25600617 (Version 1)
Quarter: 2025Q3

REPORT INFORMATION
  Report Type: Spontaneous
  Country: US (occurrence: None)
  Receive Date: 20250723
  Receipt Date: 20250723
  Transmission Date: 20251020
  Serious: Yes (Death)
  Sender: FDA-CTU
  Company Number: None

PATIENT
  Age: 76 Year
  Sex: Male

DRUGS (35)
  1. XOLAIR [Suspect]
     Active Substance: OMALIZUMAB
     Indication: Pemphigoid
     Dosage: 300 MG/2ML EVERY 4 WEEKS SUBCUTANEOUS
     Route: 058
     Dates: start: 20250701, end: 20250704
  2. IRON 100 PLUS TABLETS [Concomitant]
  3. DAPSONE [Concomitant]
     Active Substance: DAPSONE
  4. CYPROHEPTADINE 4MG TABLETS [Concomitant]
  5. NIACINAMIDE 500MG TABLETS [Concomitant]
  6. ZINC 30MG TABLETS N/M [Concomitant]
  7. APREPITANT 125MG CAPSULES [Concomitant]
  8. MULTIVITAMIN ADULT 50+ TABLETS [Concomitant]
  9. MUPIROCIN 2% OINTMENT 15GM [Concomitant]
  10. ASPIRIN 81MG EC LOW DOSE TABLETS [Concomitant]
  11. NEXIUM 20MG CAPSULES [Concomitant]
  12. ACIDOPHILUS CAPSULES [Concomitant]
  13. SIMVASTATIN 10MG TABLETS [Concomitant]
  14. B-COMPLEX TABLETS [Concomitant]
  15. TERAZOSIN [Concomitant]
     Active Substance: TERAZOSIN HYDROCHLORIDE
  16. BETA-CAROTENE CAPSULES N/M [Concomitant]
  17. VANICREAM CREAM [Concomitant]
  18. CLOBETASOL PROP 0.05% CREAM 30GM [Concomitant]
  19. VITAMIN B12 2000MCG ER TABLETS [Concomitant]
  20. DOXYCYCLINE HYCLATE [Concomitant]
     Active Substance: DOXYCYCLINE HYCLATE
  21. VITAMIN C 500MG TABLETS [Concomitant]
  22. FIBER THERAPY 500MG TABLETS [Concomitant]
  23. VITAMIN D 1,000IU SOFTGELS [Concomitant]
  24. FISH OIL 1200MG CAPSULES [Concomitant]
  25. VITAMIN E 400IU CAPSULES [Concomitant]
  26. FOLIC ACID 400MCG TABLETS [Concomitant]
  27. AMLODIPINE-BENAZ 10/40MG CAPSULES [Concomitant]
  28. HYDROCORTISONE 2.5% RECTAL CREAM [Concomitant]
  29. HUMALOG 100 U/ML K\MK PEN INJ 3ML [Concomitant]
  30. HYDROXYZINE HCL 25MG TABS (WHITE) [Concomitant]
  31. LANTUS SOLOSTAR PEN INJ 3ML [Concomitant]
  32. KETOCONAZOLE 2% CREAM 30GM [Concomitant]
  33. MAXZIDE-25 (37.5/25) TABS (GREEN) [Concomitant]
  34. METFORMIN HYDROCHLORIDE [Concomitant]
     Active Substance: METFORMIN HYDROCHLORIDE
  35. METOPROLOL ER SUCCINA E 50MG TAB [Concomitant]

REACTIONS (1)
  - Death [None]

NARRATIVE: CASE EVENT DATE: 20250704
